FAERS Safety Report 8959518 (Version 2)
Quarter: 2012Q4

REPORT INFORMATION
  Report Type: 
  Country: BR (occurrence: BR)
  Receive Date: 20121212
  Receipt Date: 20121217
  Transmission Date: 20130627
  Serious: Yes (Other)
  Sender: FDA-Public Use
  Company Number: BR-ASTRAZENECA-2012SE92264

PATIENT
  Sex: Male

DRUGS (1)
  1. VANNAIR [Suspect]
     Indication: ASTHMA
     Dosage: 160/4.5ug two times daily
     Route: 055
     Dates: start: 2010

REACTIONS (4)
  - Laryngitis [Recovered/Resolved]
  - Gastrooesophageal reflux disease [Not Recovered/Not Resolved]
  - Cough [Recovered/Resolved]
  - Off label use [Not Recovered/Not Resolved]
